FAERS Safety Report 13265476 (Version 5)
Quarter: 2017Q2

REPORT INFORMATION
  Report Type: Report from Study
  Country: TR (occurrence: TR)
  Receive Date: 20170223
  Receipt Date: 20170530
  Transmission Date: 20170830
  Serious: Yes (Hospitalization)
  Sender: FDA-Public Use
  Company Number: TR-PFIZER INC-2016585910

PATIENT
  Age: 62 Year
  Sex: Male
  Weight: 54 kg

DRUGS (8)
  1. SODIUM CHLORIDE. [Concomitant]
     Active Substance: SODIUM CHLORIDE
     Indication: GASTROINTESTINAL HAEMORRHAGE
     Dosage: 1000 MG, X2, 2XDAY
     Route: 042
     Dates: start: 20161008, end: 20161011
  2. PANTO /01263204/ [Concomitant]
     Indication: GASTROINTESTINAL HAEMORRHAGE
     Dosage: 80 MG, X2, 2XDAY
     Route: 030
     Dates: start: 20161009, end: 20161010
  3. ANTEPSIN [Concomitant]
     Active Substance: SUCRALFATE
     Indication: GASTROINTESTINAL HAEMORRHAGE
     Dosage: 250 ML, X3, 3XDAY
     Route: 048
     Dates: start: 20161011, end: 20161024
  4. NEXIUM [Concomitant]
     Active Substance: ESOMEPRAZOLE MAGNESIUM
     Indication: GASTROINTESTINAL HAEMORRHAGE
     Dosage: 40 MG, 1X/DAY
     Route: 048
     Dates: start: 20161008, end: 20161024
  5. GEMCITABINE HYDROCHLORIDE. [Suspect]
     Active Substance: GEMCITABINE HYDROCHLORIDE
     Indication: NON-SMALL CELL LUNG CANCER
     Dosage: 1600 MG, UNK
     Route: 042
     Dates: start: 20161003, end: 20161101
  6. PANTPAS [Concomitant]
     Active Substance: PANTOPRAZOLE SODIUM
     Indication: GASTROINTESTINAL HAEMORRHAGE
     Dosage: 80 MG, 1X/DAY
     Route: 042
     Dates: start: 20161011, end: 20161011
  7. CISPLATIN. [Suspect]
     Active Substance: CISPLATIN
     Indication: NON-SMALL CELL LUNG CANCER
     Dosage: 126 MG, UNK
     Route: 042
     Dates: start: 20161003, end: 20161024
  8. AVELUMAB [Suspect]
     Active Substance: AVELUMAB
     Indication: NON-SMALL CELL LUNG CANCER
     Dosage: 500 MG, CYCLIC(ONCE EVERY 2 WEEKS)
     Route: 042
     Dates: start: 20161125

REACTIONS (1)
  - Pyopneumothorax [Recovered/Resolved]

NARRATIVE: CASE EVENT DATE: 20161208
